FAERS Safety Report 7759879-8 (Version None)
Quarter: 2011Q3

REPORT INFORMATION
  Report Type: 
  Country: None (occurrence: None)
  Receive Date: 20110919
  Receipt Date: 20100527
  Transmission Date: 20111222
  Serious: No
  Sender: FDA-Public Use
  Company Number: US-BAYER-201024630NA

PATIENT
  Age: 25 Year
  Sex: Female

DRUGS (4)
  1. MIRENA [Suspect]
     Indication: CONTRACEPTION
     Dosage: 20 MCG/24HR, UNK
     Route: 015
     Dates: start: 20100201
  2. VAGISIL [Concomitant]
     Indication: VULVOVAGINAL MYCOTIC INFECTION
  3. DIFLUCAN [Concomitant]
     Indication: VULVOVAGINAL MYCOTIC INFECTION
  4. ANTIBIOTICS [Concomitant]

REACTIONS (1)
  - NO ADVERSE EVENT [None]
